FAERS Safety Report 5820364-1 (Version None)
Quarter: 2008Q3

REPORT INFORMATION
  Report Type: 
  Country: None (occurrence: None)
  Receive Date: 20080724
  Receipt Date: 20070615
  Transmission Date: 20090109
  Serious: No
  Sender: FDA-Public Use
  Company Number: A0656942A

PATIENT
  Age: 51 Year
  Sex: Female

DRUGS (7)
  1. AVANDIA [Suspect]
     Dosage: 4MG PER DAY
     Route: 048
  2. GLUCOVANCE [Concomitant]
  3. INSULIN [Concomitant]
  4. ZOCOR [Concomitant]
  5. COZAAR [Concomitant]
  6. XANAX [Concomitant]
  7. CYMBALTA [Concomitant]

REACTIONS (1)
  - BLOOD GLUCOSE INCREASED [None]
